FAERS Safety Report 19665368 (Version 3)
Quarter: 2021Q3

REPORT INFORMATION
  Report Type: Spontaneous
  Country: GB (occurrence: GB)
  Receive Date: 20210805
  Receipt Date: 20210920
  Transmission Date: 20211014
  Serious: Yes (Other)
  Sender: FDA-Public Use
  Company Number: GB-GRUNENTHAL-2020-107572

PATIENT
  Age: 31 Year
  Sex: Female
  Weight: 71 kg

DRUGS (6)
  1. SALBUTAMOL [Concomitant]
     Active Substance: ALBUTEROL
     Indication: ASTHMA
     Dosage: 2 DOSAGE FORM, 4/DAY
     Route: 065
     Dates: start: 2010
  2. PALEXIA [Suspect]
     Active Substance: TAPENTADOL HYDROCHLORIDE
     Indication: BACK PAIN
     Dosage: 100 MILLIGRAM, 2/DAY
     Route: 048
     Dates: start: 20191209, end: 202011
  3. GABAPENTIN. [Concomitant]
     Active Substance: GABAPENTIN
     Indication: PAIN
     Dosage: 600 MILLIGRAM, 3/DAY
     Route: 048
     Dates: start: 20171108, end: 202011
  4. AMITRIPTYLINE [Concomitant]
     Active Substance: AMITRIPTYLINE
     Indication: NEURALGIA
     Dosage: 25 MILLIGRAM, 1/DAY
     Route: 048
     Dates: start: 2018
  5. QUTENZA [Suspect]
     Active Substance: CAPSAICIN
     Indication: SCAR PAIN
     Dosage: UNK
     Route: 003
     Dates: start: 201804, end: 20210216
  6. NAPROXEN. [Concomitant]
     Active Substance: NAPROXEN
     Indication: PAIN
     Dosage: 500 MILLIGRAM, 2/DAY
     Route: 048
     Dates: start: 20171102, end: 202011

REACTIONS (11)
  - Inappropriate schedule of product administration [Not Recovered/Not Resolved]
  - Induced labour [Unknown]
  - Intrapartum haemorrhage [Unknown]
  - COVID-19 [Recovered/Resolved]
  - Foetal hypokinesia [Unknown]
  - Maternal exposure during pregnancy [Recovered/Resolved]
  - Haemorrhage in pregnancy [Recovered/Resolved]
  - Small for dates baby [Unknown]
  - Product supply issue [Unknown]
  - Prolonged labour [Unknown]
  - Premature delivery [Unknown]

NARRATIVE: CASE EVENT DATE: 202011
